FAERS Safety Report 19472960 (Version 1)
Quarter: 2021Q2

REPORT INFORMATION
  Report Type: Spontaneous
  Country: US (occurrence: US)
  Receive Date: 20210629
  Receipt Date: 20210629
  Transmission Date: 20210717
  Serious: Yes (Other)
  Sender: FDA-Public Use
  Company Number: US-PFIZER INC-2021716246

PATIENT
  Age: 91 Year
  Sex: Female

DRUGS (1)
  1. ESTRING [Suspect]
     Active Substance: ESTRADIOL
     Dosage: USED IT EVERY 3?4 MONTHS

REACTIONS (3)
  - Drug dependence [Unknown]
  - Off label use [Unknown]
  - Product use issue [Unknown]
